FAERS Safety Report 8362279-3 (Version None)
Quarter: 2012Q2

REPORT INFORMATION
  Report Type: 
  Country: None (occurrence: None)
  Receive Date: 20120515
  Receipt Date: 20120503
  Transmission Date: 20120825
  Serious: No
  Sender: FDA-Public Use
  Company Number: US-ELI_LILLY_AND_COMPANY-US201201009217

PATIENT
  Sex: Female

DRUGS (4)
  1. CALCIUM [Concomitant]
  2. FORTEO [Suspect]
     Indication: OSTEOPOROSIS
     Dosage: 20 UG, QD
     Dates: start: 20120101
  3. FORTEO [Suspect]
     Dosage: 20 UG, QD
  4. NEXIUM [Concomitant]

REACTIONS (3)
  - INJECTION SITE MASS [None]
  - ASTHENIA [None]
  - INJECTION SITE HAEMATOMA [None]
